FAERS Safety Report 17095074 (Version 1)
Quarter: 2019Q4

REPORT INFORMATION
  Report Type: Spontaneous
  Country: US (occurrence: US)
  Receive Date: 20191101
  Receipt Date: 20191101
  Transmission Date: 20200122
  Serious: No
  Sender: FDA-Public Use
  Company Number: None

PATIENT
  Age: 67 Year
  Sex: Male

DRUGS (1)
  1. SILDENAFIL. [Suspect]
     Active Substance: SILDENAFIL
     Indication: ERECTILE DYSFUNCTION
     Dosage: ?          OTHER FREQUENCY:PRN;?
     Route: 048
     Dates: start: 20190819, end: 20191008

REACTIONS (1)
  - Rash [None]

NARRATIVE: CASE EVENT DATE: 20191008
